FAERS Safety Report 4867160-X (Version None)
Quarter: 2005Q4

REPORT INFORMATION
  Report Type: 
  Country: None (occurrence: None)
  Receive Date: 20051222
  Receipt Date: 20051207
  Transmission Date: 20060501
  Serious: Yes (Hospitalization)
  Sender: FDA-Public Use
  Company Number: 2005P1000486

PATIENT
  Age: 64 Year
  Sex: Male
  Weight: 83 kg

DRUGS (17)
  1. RETEPLASE (RETEPLASE) [Suspect]
     Indication: ACUTE MYOCARDIAL INFARCTION
     Dosage: IV
     Route: 042
     Dates: start: 20050527, end: 20050527
  2. ABCIXIMAB (ABCIXIMAB) [Suspect]
     Indication: ACUTE MYOCARDIAL INFARCTION
     Dosage: IV
     Route: 042
     Dates: start: 20050527, end: 20050527
  3. SPIRONOLACTONE [Concomitant]
  4. RAMIPRIL [Concomitant]
  5. GLYCERYL TRINITRATE [Concomitant]
  6. DIGOXIN [Concomitant]
  7. METOPROLOL TARTRATE [Concomitant]
  8. AMINOPHYLLINE [Concomitant]
  9. HYDROCORTISONE [Concomitant]
  10. CARVEDILOL [Concomitant]
  11. SIMVASTATIN [Concomitant]
  12. ASPIRIN [Concomitant]
  13. CLOPIDOGREL [Concomitant]
  14. ISOSORBIDE MONONITRATE [Concomitant]
  15. FUROSEMIDE [Concomitant]
  16. MORPHINE [Concomitant]
  17. ACARD [Concomitant]

REACTIONS (9)
  - CORONARY ARTERY STENOSIS [None]
  - CULTURE POSITIVE [None]
  - DILATATION ATRIAL [None]
  - INTRACARDIAC THROMBUS [None]
  - MITRAL VALVE DISEASE [None]
  - MYOCARDIAL ISCHAEMIA [None]
  - POST PROCEDURAL COMPLICATION [None]
  - PULMONARY OEDEMA [None]
  - STAPHYLOCOCCAL INFECTION [None]
